FAERS Safety Report 16060727 (Version 1)
Quarter: 2019Q1

REPORT INFORMATION
  Report Type: Spontaneous
  Country: FR (occurrence: FR)
  Receive Date: 20190312
  Receipt Date: 20190312
  Transmission Date: 20190418
  Serious: Yes (Other)
  Sender: FDA-Public Use
  Company Number: FR-ACCORD-112056

PATIENT
  Age: 38 Year
  Sex: Male
  Weight: 86 kg

DRUGS (1)
  1. SERTRALINE [Suspect]
     Active Substance: SERTRALINE HYDROCHLORIDE
     Indication: PRODUCT USED FOR UNKNOWN INDICATION
     Route: 048
     Dates: start: 20170906, end: 20180829

REACTIONS (1)
  - Weight increased [Recovering/Resolving]

NARRATIVE: CASE EVENT DATE: 20171030
